FAERS Safety Report 24928804 (Version 1)
Quarter: 2025Q1

REPORT INFORMATION
  Report Type: Spontaneous
  Country: NL (occurrence: NL)
  Receive Date: 20250205
  Receipt Date: 20250205
  Transmission Date: 20250408
  Serious: Yes (Disabling)
  Sender: MYLAN
  Company Number: None

PATIENT
  Age: 26 Year
  Sex: Female
  Weight: 73 kg

DRUGS (1)
  1. ISOTRETINOIN [Suspect]
     Active Substance: ISOTRETINOIN
     Indication: Acne
     Dosage: 20 MILLIGRAM, QD (1 X DAILY 1 PIECE)
     Route: 048
     Dates: start: 20220904, end: 20230201

REACTIONS (1)
  - Colitis ulcerative [Not Recovered/Not Resolved]
